FAERS Safety Report 9712279 (Version 2)
Quarter: 2013Q4

REPORT INFORMATION
  Report Type: Spontaneous
  Country: US (occurrence: US)
  Receive Date: 20131126
  Receipt Date: 20131126
  Transmission Date: 20140711
  Serious: No
  Sender: FDA-Public Use
  Company Number: US-BRISTOL-MYERS SQUIBB COMPANY-18856153

PATIENT
  Age: 71 Year
  Sex: Male
  Weight: 95.69 kg

DRUGS (4)
  1. BYDUREON [Suspect]
     Indication: TYPE 2 DIABETES MELLITUS
     Route: 058
     Dates: start: 20130205, end: 20130608
  2. METFORMIN [Concomitant]
  3. GLIMEPIRIDE [Concomitant]
  4. METOPROLOL [Concomitant]

REACTIONS (5)
  - Injection site mass [Recovering/Resolving]
  - Injection site discolouration [Unknown]
  - Injection site pruritus [Unknown]
  - Heart rate increased [Unknown]
  - Pain [Unknown]
